FAERS Safety Report 13155424 (Version 1)
Quarter: 2017Q1

REPORT INFORMATION
  Report Type: Spontaneous
  Country: IN (occurrence: IN)
  Receive Date: 20170126
  Receipt Date: 20170126
  Transmission Date: 20170428
  Serious: Yes (Other)
  Sender: FDA-Public Use
  Company Number: IN-MYLANLABS-2017M1004351

PATIENT

DRUGS (2)
  1. METHOTREXATE. [Suspect]
     Active Substance: METHOTREXATE
     Indication: LIP AND/OR ORAL CAVITY CANCER
     Route: 065
  2. CISPLATIN. [Suspect]
     Active Substance: CISPLATIN
     Indication: LIP AND/OR ORAL CAVITY CANCER
     Route: 065

REACTIONS (6)
  - Mastication disorder [Recovering/Resolving]
  - Swelling face [Recovering/Resolving]
  - Blister [Recovering/Resolving]
  - Diarrhoea [Unknown]
  - Cancer pain [Recovering/Resolving]
  - Vomiting [Unknown]
